FAERS Safety Report 7414576-3 (Version None)
Quarter: 2011Q2

REPORT INFORMATION
  Report Type: 
  Country: None (occurrence: None)
  Receive Date: 20110414
  Receipt Date: 20110407
  Transmission Date: 20111010
  Serious: Yes (Hospitalization)
  Sender: FDA-Public Use
  Company Number: US-BRISTOL-MYERS SQUIBB COMPANY-15652472

PATIENT
  Age: 63 Year
  Sex: Female

DRUGS (2)
  1. CYCLOPHOSPHAMIDE [Suspect]
     Indication: BREAST CANCER
     Dosage: 2ND CYCLE 6 WEEKS AFTER 1ST CYCLE AND 3RD CYCLE 3 WEEKS AFTER 2ND CYCLE.
  2. DOXORUBICIN [Suspect]
     Indication: BREAST CANCER
     Dosage: 2ND CYCLE 6 WEEKS AFTER 1ST CYCLE AND 3RD CYCLE 3 WEEKS AFTER 2ND CYCLE

REACTIONS (1)
  - ARTERIAL THROMBOSIS [None]
